FAERS Safety Report 7231004-1 (Version None)
Quarter: 2011Q1

REPORT INFORMATION
  Report Type: 
  Country: None (occurrence: None)
  Receive Date: 20110118
  Receipt Date: 20110107
  Transmission Date: 20110831
  Serious: Yes (Other)
  Sender: FDA-Public Use
  Company Number: CA-ROCHE-752547

PATIENT
  Sex: Female

DRUGS (1)
  1. ACCUTANE [Suspect]
     Route: 065
     Dates: start: 19900101

REACTIONS (4)
  - GASTRITIS [None]
  - IRRITABLE BOWEL SYNDROME [None]
  - ULCER [None]
  - DEPRESSION [None]
